FAERS Safety Report 9092003 (Version 1)
Quarter: 2013Q1

REPORT INFORMATION
  Report Type: Report from Study
  Country: US (occurrence: US)
  Receive Date: 20130131
  Receipt Date: 20130131
  Transmission Date: 20140127
  Serious: Yes (Hospitalization)
  Sender: FDA-Public Use
  Company Number: US-ABBOTT-12P-163-0994690-00

PATIENT
  Age: 32 Year
  Sex: Female
  Weight: 84.9 kg

DRUGS (15)
  1. HUMIRA [Suspect]
     Indication: CROHN^S DISEASE
     Dates: start: 20120227
  2. PRENATAL VITAMINS [Concomitant]
     Indication: PRODUCT USED FOR UNKNOWN INDICATION
     Route: 048
     Dates: start: 20120227
  3. FOLIC ACID [Concomitant]
     Indication: VITAMIN SUPPLEMENTATION
     Route: 048
     Dates: start: 20120227
  4. VITAMIN D [Concomitant]
     Indication: PRODUCT USED FOR UNKNOWN INDICATION
     Route: 048
     Dates: start: 20120227
  5. POTASSIUM [Concomitant]
     Indication: CROHN^S DISEASE
     Route: 048
     Dates: start: 20120227
  6. VITAMIN B12 [Concomitant]
     Route: 050
     Dates: start: 20120227
  7. CLOMID [Concomitant]
     Indication: INFERTILITY
     Route: 048
     Dates: start: 20120229, end: 20120304
  8. ESTRADIOL [Concomitant]
     Indication: INFERTILITY
     Route: 061
     Dates: start: 20120305, end: 20120309
  9. LEVOXYL [Concomitant]
     Indication: AUTOIMMUNE THYROIDITIS
     Route: 048
     Dates: start: 20120227
  10. TETANUS VACCINE [Concomitant]
     Indication: TETANUS IMMUNISATION
     Route: 050
     Dates: start: 20120612, end: 20120612
  11. BENADRYL [Concomitant]
     Indication: ANAPHYLAXIS PROPHYLAXIS
     Route: 048
     Dates: start: 20120814, end: 20120816
  12. BENADRYL [Concomitant]
     Indication: ANAPHYLAXIS PROPHYLAXIS
     Route: 048
     Dates: start: 20120921, end: 20121002
  13. FLU VACCINE NOS [Concomitant]
     Indication: PRODUCT USED FOR UNKNOWN INDICATION
     Route: 050
     Dates: start: 20121010, end: 20121010
  14. VALTREX [Concomitant]
     Indication: HERPES ZOSTER
     Route: 048
     Dates: start: 20120227, end: 20120324
  15. VALTREX [Concomitant]
     Indication: PROPHYLAXIS
     Route: 048
     Dates: start: 20120711

REACTIONS (14)
  - Streptococcal urinary tract infection [Unknown]
  - Streptococcal urinary tract infection [Unknown]
  - Respiratory tract infection [Unknown]
  - Nausea [Recovered/Resolved]
  - Headache [Not Recovered/Not Resolved]
  - Streptococcal urinary tract infection [Recovered/Resolved]
  - Dyspepsia [Unknown]
  - Fungal infection [Recovered/Resolved]
  - Respiratory tract infection [Recovered/Resolved]
  - Urinary tract infection [Unknown]
  - Fungal infection [Recovered/Resolved]
  - Urticaria [Recovered/Resolved]
  - Dyspepsia [Not Recovered/Not Resolved]
  - Nasopharyngitis [Not Recovered/Not Resolved]
